FAERS Safety Report 14655348 (Version 1)
Quarter: 2018Q1

REPORT INFORMATION
  Report Type: Report from Study
  Country: US (occurrence: US)
  Receive Date: 20180319
  Receipt Date: 20180319
  Transmission Date: 20180509
  Serious: Yes (Other)
  Sender: FDA-Public Use
  Company Number: US-AUROBINDO-AUR-APL-2018-015088

PATIENT

DRUGS (1)
  1. LIDOCAINE. [Suspect]
     Active Substance: LIDOCAINE
     Indication: PAIN
     Dosage: 0.25 AND 1.8 MG/KG/H
     Route: 042

REACTIONS (5)
  - Cognitive disorder [Unknown]
  - Delirium [Unknown]
  - Dizziness [Unknown]
  - Hypoaesthesia oral [Unknown]
  - Somnolence [Unknown]
